FAERS Safety Report 6183977-6 (Version None)
Quarter: 2009Q2

REPORT INFORMATION
  Report Type: 
  Country: None (occurrence: None)
  Receive Date: 20090506
  Receipt Date: 20090506
  Transmission Date: 20091009
  Serious: No
  Sender: FDA-Public Use
  Company Number: None

PATIENT
  Sex: Female
  Weight: 64.55 kg

DRUGS (7)
  1. NORTRIPTYLINE HCL [Suspect]
     Dosage: 10MG CAPSULE 30 MG QHS ORAL
     Route: 048
     Dates: start: 20090224, end: 20090505
  2. ATIVAN [Concomitant]
  3. FLOVENT HFA (FLUTICASONE PROPIONATE ORAL INHALER) [Concomitant]
  4. INDERAL [Concomitant]
  5. LEVOXYL [Concomitant]
  6. PLAQUENIL SULFATE (HYDROXYCHLOROQUINE) [Concomitant]
  7. VITAMIN D3 (CHOLECALCIFEROL) [Concomitant]

REACTIONS (1)
  - WEIGHT INCREASED [None]
